FAERS Safety Report 22220962 (Version 2)
Quarter: 2023Q2

REPORT INFORMATION
  Report Type: Spontaneous
  Country: US (occurrence: US)
  Receive Date: 20230418
  Receipt Date: 20230425
  Transmission Date: 20230722
  Serious: Yes (Hospitalization, Other)
  Sender: FDA-Public Use
  Company Number: US-009507513-2304USA006130

PATIENT
  Sex: Female

DRUGS (1)
  1. JANUVIA [Suspect]
     Active Substance: SITAGLIPTIN PHOSPHATE
     Dosage: 100MG, ONCE DAILY
     Route: 048

REACTIONS (9)
  - Loss of consciousness [Unknown]
  - Fall [Unknown]
  - Blood glucose increased [Recovering/Resolving]
  - Depression [Unknown]
  - Adjustment disorder [Unknown]
  - Alcohol abuse [Unknown]
  - Loss of personal independence in daily activities [Unknown]
  - Treatment noncompliance [Unknown]
  - Product dose omission issue [Unknown]

NARRATIVE: CASE EVENT DATE: 20220801
